FAERS Safety Report 20863190 (Version 1)
Quarter: 2022Q2

REPORT INFORMATION
  Report Type: Spontaneous
  Country: IN (occurrence: IN)
  Receive Date: 20220523
  Receipt Date: 20220523
  Transmission Date: 20220720
  Serious: Yes (Death)
  Sender: FDA-Public Use
  Company Number: IN-PFIZER INC-2020419983

PATIENT
  Age: 58 Year
  Sex: Female

DRUGS (3)
  1. PALBOCICLIB [Suspect]
     Active Substance: PALBOCICLIB
     Indication: Breast cancer metastatic
     Dosage: 125 MG, CYCLIC 1X/DAY (21/30 DAYS)
     Route: 048
     Dates: start: 20190727, end: 20220508
  2. PALBOCICLIB [Suspect]
     Active Substance: PALBOCICLIB
     Indication: Metastases to bone
  3. ZOLDONAT [Concomitant]
     Dosage: 4 MG, EVERY 3 MONTHS
     Route: 042
     Dates: start: 2019

REACTIONS (4)
  - Death [Fatal]
  - Haemoglobin abnormal [Unknown]
  - Neoplasm progression [Unknown]
  - Fungal skin infection [Unknown]
